FAERS Safety Report 4338210-4 (Version None)
Quarter: 2004Q2

REPORT INFORMATION
  Report Type: 
  Country: None (occurrence: None)
  Receive Date: 20040409
  Receipt Date: 20040405
  Transmission Date: 20050107
  Serious: Yes (Hospitalization, Disabling)
  Sender: FDA-Public Use
  Company Number: 2004-03-0505

PATIENT
  Age: 48 Year
  Sex: Male
  Weight: 64 kg

DRUGS (7)
  1. REBETOL [Suspect]
     Indication: HEPATITIS C
     Dosage: 600 MG QD ORAL
     Route: 048
     Dates: start: 20031110, end: 20040306
  2. INTRON A [Suspect]
     Indication: HEPATITIS C
     Dosage: SEE IMAGE
     Route: 030
     Dates: start: 20031110, end: 20031210
  3. INTRON A [Suspect]
     Indication: HEPATITIS C
     Dosage: SEE IMAGE
     Route: 030
     Dates: start: 20031110, end: 20040306
  4. INTRON A [Suspect]
     Indication: HEPATITIS C
     Dosage: SEE IMAGE
     Route: 030
     Dates: start: 20031212, end: 20040306
  5. URSO [Concomitant]
  6. BIOFERMIN [Concomitant]
  7. ALBUMIN TANNATE [Concomitant]

REACTIONS (4)
  - HEMIPARESIS [None]
  - HYPERTENSION [None]
  - PUTAMEN HAEMORRHAGE [None]
  - SPEECH DISORDER [None]
